FAERS Safety Report 10040874 (Version 1)
Quarter: 2014Q1

REPORT INFORMATION
  Report Type: Spontaneous
  Country: US (occurrence: US)
  Receive Date: 20140327
  Receipt Date: 20140327
  Transmission Date: 20141002
  Serious: Yes (Other)
  Sender: FDA-Public Use
  Company Number: US-PFIZER INC-2014083846

PATIENT
  Age: 50 Year
  Sex: Male

DRUGS (5)
  1. GENOTROPIN MQ [Suspect]
     Indication: HYPOPITUITARISM
     Dosage: 0.4 MG, DAILY
     Route: 058
     Dates: start: 2009
  2. GENOTROPIN MQ [Suspect]
     Indication: ENDOCRINE DISORDER
  3. TESTOSTERONE [Concomitant]
     Dosage: UNK
  4. PROVIGIL [Concomitant]
     Dosage: UNK
  5. EXALGO [Concomitant]
     Dosage: UNK

REACTIONS (1)
  - Carpal tunnel syndrome [Unknown]
